FAERS Safety Report 21461250 (Version 1)
Quarter: 2022Q4

REPORT INFORMATION
  Report Type: Spontaneous
  Country: SE (occurrence: SE)
  Receive Date: 20221015
  Receipt Date: 20221015
  Transmission Date: 20230113
  Serious: Yes (Other)
  Sender: FDA-Public Use
  Company Number: SE-AMGEN-SWESP2022174359

PATIENT
  Age: 61 Year
  Sex: Female

DRUGS (4)
  1. BEVACIZUMAB [Suspect]
     Active Substance: BEVACIZUMAB
     Indication: Peritoneal carcinoma metastatic
     Dosage: 2 CYCLES WITH CHEMOTHERAPY
     Route: 065
  2. BEVACIZUMAB [Suspect]
     Active Substance: BEVACIZUMAB
     Dosage: MAINTENANCE THERAPY
     Route: 065
  3. DOXORUBICIN HYDROCHLORIDE [Concomitant]
     Active Substance: DOXORUBICIN HYDROCHLORIDE
     Indication: Peritoneal carcinoma metastatic
     Dosage: 30 MILLIGRAM/M2, Q4WK
     Route: 065
  4. CARBOPLATIN [Concomitant]
     Active Substance: CARBOPLATIN
     Indication: Peritoneal carcinoma metastatic
     Dosage: UNK, Q4WK
     Route: 065

REACTIONS (1)
  - Peritoneal carcinoma metastatic [Not Recovered/Not Resolved]
